FAERS Safety Report 9060456 (Version 2)
Quarter: 2013Q2

REPORT INFORMATION
  Report Type: Spontaneous
  Country: US (occurrence: US)
  Receive Date: 20130212
  Receipt Date: 20130405
  Transmission Date: 20140414
  Serious: Yes (Other)
  Sender: FDA-Public Use
  Company Number: US-PFIZER INC-2013032145

PATIENT
  Age: 18 Year
  Sex: Female

DRUGS (1)
  1. LO/OVRAL-28 [Suspect]
     Indication: CONTRACEPTION
     Dosage: 30MCG-0.3MG TABLET ONE TABLET ONCE DAILY
     Route: 048
     Dates: start: 20091218

REACTIONS (3)
  - Drug ineffective [Unknown]
  - Unintended pregnancy [Unknown]
  - Foetal death [Unknown]
